FAERS Safety Report 9387824 (Version 1)
Quarter: 2013Q3

REPORT INFORMATION
  Report Type: Spontaneous
  Country: US (occurrence: US)
  Receive Date: 20130708
  Receipt Date: 20130708
  Transmission Date: 20140515
  Serious: Yes (Other)
  Sender: FDA-Public Use
  Company Number: US-BAYER-2013-080649

PATIENT
  Age: 84 Year
  Sex: Female
  Weight: 63.04 kg

DRUGS (2)
  1. BAYER ASPIRIN REGIMEN REGULAR 325 MG STRENGTH [Suspect]
     Indication: CEREBROVASCULAR ACCIDENT PROPHYLAXIS
     Dosage: 1 DF, QD
     Dates: start: 1999, end: 20130627
  2. CARDIZEM [Concomitant]

REACTIONS (3)
  - Labyrinthitis [None]
  - Vertigo [Recovered/Resolved]
  - Off label use [None]
